FAERS Safety Report 18861058 (Version 2)
Quarter: 2021Q1

REPORT INFORMATION
  Report Type: Spontaneous
  Country: AU (occurrence: AU)
  Receive Date: 20210208
  Receipt Date: 20210315
  Transmission Date: 20210420
  Serious: Yes (Other)
  Sender: FDA-Public Use
  Company Number: AU-BAXTER-2021BAX002428

PATIENT
  Age: 72 Year
  Sex: Male
  Weight: 93 kg

DRUGS (6)
  1. PACLITAXEL. [Suspect]
     Active Substance: PACLITAXEL
     Dosage: DOSE REINTRODUCED
     Route: 042
  2. PACLITAXEL. [Suspect]
     Active Substance: PACLITAXEL
     Dosage: INFUSED THE DRUG OVER 2 HOURS (SLOWER INFUSION RATE), DAY 8 OF CYCLE 2
     Route: 065
     Dates: start: 20210304, end: 202103
  3. SODIUM CHLORIDE (VIAFLO) 1000ML [Suspect]
     Active Substance: SODIUM CHLORIDE
     Dosage: DOSE REINTRODUCED
     Route: 042
  4. PACLITAXEL. [Suspect]
     Active Substance: PACLITAXEL
     Indication: PRODUCT USED FOR UNKNOWN INDICATION
     Dosage: DAY 1 OF CYCLE 1
     Route: 042
     Dates: start: 20210128
  5. SODIUM CHLORIDE (VIAFLO) 1000ML [Suspect]
     Active Substance: SODIUM CHLORIDE
     Dosage: INFUSED THE DRUG OVER 2 HOURS (SLOWER INFUSION RATE), DAY 8 OF CYCLE 2
     Route: 065
     Dates: start: 20210304, end: 202103
  6. SODIUM CHLORIDE (VIAFLO) 1000ML [Suspect]
     Active Substance: SODIUM CHLORIDE
     Indication: MEDICATION DILUTION
     Dosage: DAY 1 OF CYCLE 1
     Route: 042
     Dates: start: 20210128

REACTIONS (4)
  - Dysphagia [Recovered/Resolved]
  - Back pain [Unknown]
  - Back pain [Recovered/Resolved]
  - Back pain [Recovered/Resolved]

NARRATIVE: CASE EVENT DATE: 20210128
